FAERS Safety Report 20748009 (Version 1)
Quarter: 2022Q2

REPORT INFORMATION
  Report Type: Spontaneous
  Country: US (occurrence: US)
  Receive Date: 20220425
  Receipt Date: 20220425
  Transmission Date: 20220720
  Serious: No
  Sender: FDA-Public Use
  Company Number: US-AMGEN-USASP2022066682

PATIENT
  Age: 53 Year
  Sex: Female

DRUGS (23)
  1. PROCRIT [Suspect]
     Active Substance: ERYTHROPOIETIN
     Indication: Product used for unknown indication
     Route: 065
  2. CINACALCET HYDROCHLORIDE [Concomitant]
     Active Substance: CINACALCET HYDROCHLORIDE
     Indication: Product used for unknown indication
  3. DYPHYLLINE [Concomitant]
     Active Substance: DYPHYLLINE
  4. ALBUTEROL SULFATE [Concomitant]
     Active Substance: ALBUTEROL SULFATE
  5. MIDODRINE [Concomitant]
     Active Substance: MIDODRINE
  6. LEVOTHYROXINE [Concomitant]
     Active Substance: LEVOTHYROXINE
  7. KETOTIFEN [Concomitant]
     Active Substance: KETOTIFEN
     Route: 047
  8. NEPHRO-VITE [ASCORBIC ACID;BIOTIN;CYANOCOBALAMIN;FOLIC ACID;NICOTINAMI [Concomitant]
  9. OPSUMIT [Concomitant]
     Active Substance: MACITENTAN
  10. LORAZEPAM [Concomitant]
     Active Substance: LORAZEPAM
  11. GABAPENTIN [Concomitant]
     Active Substance: GABAPENTIN
  12. AMITRIPTYLINE [Concomitant]
     Active Substance: AMITRIPTYLINE
  13. MONTELUKAST SODIUM [Concomitant]
     Active Substance: MONTELUKAST SODIUM
  14. RENVELA [Concomitant]
     Active Substance: SEVELAMER CARBONATE
  15. OMEPRAZOLE [Concomitant]
     Active Substance: OMEPRAZOLE
  16. ATENOLOL [Concomitant]
     Active Substance: ATENOLOL
  17. NARCAN [Concomitant]
     Active Substance: NALOXONE HYDROCHLORIDE
  18. TRAMADOL [Concomitant]
     Active Substance: TRAMADOL
  19. VELPHORO [Concomitant]
     Active Substance: SUCROFERRIC OXYHYDROXIDE
  20. PREDNISONE [Concomitant]
     Active Substance: PREDNISONE
  21. PANTOPRAZOLE [Concomitant]
     Active Substance: PANTOPRAZOLE
  22. ASPIRIN [Concomitant]
     Active Substance: ASPIRIN
  23. CLOBETASOL [Concomitant]
     Active Substance: CLOBETASOL

REACTIONS (1)
  - Drug hypersensitivity [Unknown]
